FAERS Safety Report 5988758-1 (Version None)
Quarter: 2008Q4

REPORT INFORMATION
  Report Type: 
  Country: None (occurrence: None)
  Receive Date: 20081210
  Receipt Date: 20081203
  Transmission Date: 20090506
  Serious: Yes (Other)
  Sender: FDA-Public Use
  Company Number: PHHY2008DE29261

PATIENT
  Sex: Female

DRUGS (12)
  1. MYFORTIC [Suspect]
     Indication: SYSTEMIC LUPUS ERYTHEMATOSUS
     Dosage: 1080 MG/DAY
     Route: 048
     Dates: start: 20060101
  2. QUENSYL [Concomitant]
  3. TENORMIN [Concomitant]
  4. GLIMEPIRIDE [Concomitant]
  5. PREDNISOLONE [Concomitant]
  6. ALLOPURINOL [Concomitant]
  7. SIMVASTATIN [Concomitant]
  8. OMEPRAZOLE [Concomitant]
  9. DIGITOXIN TAB [Concomitant]
  10. LEVOTHYROXINE SODIUM [Concomitant]
  11. LASIX [Concomitant]
  12. MARCUMAR [Concomitant]

REACTIONS (4)
  - BIOPSY BONE MARROW [None]
  - LEUKOPENIA [None]
  - SPLENOMEGALY [None]
  - THROMBOCYTOPENIA [None]
